FAERS Safety Report 20058267 (Version 1)
Quarter: 2021Q4

REPORT INFORMATION
  Report Type: Spontaneous
  Country: CA (occurrence: CA)
  Receive Date: 20211111
  Receipt Date: 20211111
  Transmission Date: 20220304
  Serious: Yes (Other)
  Sender: FDA-Public Use
  Company Number: CA-009507513-2007CAN009517

PATIENT
  Age: 37 Year
  Sex: Female

DRUGS (1)
  1. NUVARING [Suspect]
     Active Substance: ETHINYL ESTRADIOL\ETONOGESTREL
     Indication: Contraception
     Dosage: 1 RING (1 DOSAGE FORM)
     Route: 067

REACTIONS (5)
  - Pregnancy with contraceptive device [Unknown]
  - Unintended pregnancy [Unknown]
  - Drug ineffective [Unknown]
  - Adverse drug reaction [Unknown]
  - Device use issue [Unknown]
